FAERS Safety Report 16157232 (Version 1)
Quarter: 2019Q2

REPORT INFORMATION
  Report Type: Spontaneous
  Country: JP (occurrence: JP)
  Receive Date: 20190404
  Receipt Date: 20190404
  Transmission Date: 20190711
  Serious: Yes (Other)
  Sender: FDA-Public Use
  Company Number: PHHY2019JP073158

PATIENT
  Age: 18 Year
  Sex: Male

DRUGS (7)
  1. MESALAZINE [Interacting]
     Active Substance: MESALAMINE
     Dosage: 4 G, QD
     Route: 048
  2. ADALIMUMAB [Interacting]
     Active Substance: ADALIMUMAB
     Dosage: 40 MG, UNK
     Route: 058
  3. MESALAZINE [Interacting]
     Active Substance: MESALAMINE
     Dosage: 3.6 G, QD
     Route: 048
  4. ADALIMUMAB [Interacting]
     Active Substance: ADALIMUMAB
     Dosage: 40 MG, QW
     Route: 058
  5. ADALIMUMAB [Suspect]
     Active Substance: ADALIMUMAB
     Indication: CROHN^S DISEASE
     Dosage: UNK
     Route: 058
  6. MESALAZINE [Interacting]
     Active Substance: MESALAMINE
     Indication: CROHN^S DISEASE
     Dosage: 3 G, QD
     Route: 048
  7. MESALAZINE [Interacting]
     Active Substance: MESALAMINE
     Dosage: 4 G, QD
     Route: 048

REACTIONS (1)
  - Drug interaction [Unknown]
